FAERS Safety Report 17229561 (Version 2)
Quarter: 2020Q1

REPORT INFORMATION
  Report Type: Spontaneous
  Country: JP (occurrence: JP)
  Receive Date: 20200103
  Receipt Date: 20200219
  Transmission Date: 20200409
  Serious: Yes (Death)
  Sender: FDA-Public Use
  Company Number: JP-ROCHE-2510133

PATIENT
  Age: 63 Year
  Sex: Female

DRUGS (5)
  1. SERENACE [Concomitant]
     Active Substance: HALOPERIDOL
  2. XOFLUZA [Suspect]
     Active Substance: BALOXAVIR MARBOXIL
     Indication: INFLUENZA
     Route: 048
     Dates: start: 20191217, end: 20191217
  3. MILNACIPRAN HYDROCHLORIDE. [Concomitant]
     Active Substance: MILNACIPRAN HYDROCHLORIDE
  4. HALOMONTH [Concomitant]
     Active Substance: HALOPERIDOL DECANOATE
     Route: 065
     Dates: start: 20191212, end: 20191212
  5. QUETIAPINE. [Concomitant]
     Active Substance: QUETIAPINE

REACTIONS (1)
  - Circulatory collapse [Fatal]

NARRATIVE: CASE EVENT DATE: 20191220
